FAERS Safety Report 9695995 (Version 2)
Quarter: 2014Q1

REPORT INFORMATION
  Report Type: Spontaneous
  Country: IT (occurrence: IT)
  Receive Date: 20131119
  Receipt Date: 20140112
  Transmission Date: 20141002
  Serious: Yes (Other)
  Sender: FDA-Public Use
  Company Number: IT-B.I. PHARMACEUTICALS,INC./RIDGEFIELD-2013-BI-37321IT

PATIENT
  Age: 77 Year
  Sex: Female

DRUGS (2)
  1. PRADAXA [Suspect]
     Indication: CARDIOVASCULAR EVENT PROPHYLAXIS
     Dosage: 220 MG
     Route: 048
     Dates: start: 20130801, end: 20130808
  2. BISOPROLOL HEMIFUMARATE [Concomitant]
     Dosage: 2.5 MG
     Route: 048
     Dates: start: 20130416, end: 20131111

REACTIONS (3)
  - Eyelid oedema [Not Recovered/Not Resolved]
  - Pruritus [Not Recovered/Not Resolved]
  - Erythema [Not Recovered/Not Resolved]
